FAERS Safety Report 25511710 (Version 1)
Quarter: 2025Q3

REPORT INFORMATION
  Report Type: Spontaneous
  Country: US (occurrence: US)
  Receive Date: 20250703
  Receipt Date: 20250703
  Transmission Date: 20251021
  Serious: No
  Sender: RADIUS PHARM
  Company Number: US-RADIUS HEALTH INC.-2024US004164

PATIENT
  Sex: Female

DRUGS (1)
  1. TYMLOS [Suspect]
     Active Substance: ABALOPARATIDE
     Indication: Osteoporosis postmenopausal
     Dates: start: 20240328

REACTIONS (5)
  - Injection site pruritus [Recovered/Resolved]
  - Abdominal pain [Not Recovered/Not Resolved]
  - Injection site erythema [Recovered/Resolved]
  - Abdominal pain upper [Not Recovered/Not Resolved]
  - Faeces discoloured [Not Recovered/Not Resolved]
